FAERS Safety Report 18250395 (Version 2)
Quarter: 2021Q1

REPORT INFORMATION
  Report Type: Report from Study
  Country: None (occurrence: US)
  Receive Date: 20200910
  Receipt Date: 20210116
  Transmission Date: 20210419
  Serious: Yes (Other)
  Sender: FDA-Public Use
  Company Number: US-ABBVIE-20K-163-3553497-00

PATIENT
  Age: 67 Year
  Sex: Male
  Weight: 145.28 kg

DRUGS (8)
  1. DOXAZOSIN [Concomitant]
     Active Substance: DOXAZOSIN MESYLATE
     Indication: PRODUCT USED FOR UNKNOWN INDICATION
     Dosage: AT BED TIME
  2. FOLIC ACID. [Concomitant]
     Active Substance: FOLIC ACID
     Indication: PRODUCT USED FOR UNKNOWN INDICATION
  3. SINEMET [Concomitant]
     Active Substance: CARBIDOPA\LEVODOPA
     Indication: PRODUCT USED FOR UNKNOWN INDICATION
     Dosage: 25/100 MG
  4. PRAVASTATIN. [Concomitant]
     Active Substance: PRAVASTATIN
     Indication: PRODUCT USED FOR UNKNOWN INDICATION
  5. HUMIRA [Suspect]
     Active Substance: ADALIMUMAB
     Indication: PSORIASIS
     Route: 058
     Dates: start: 20200724
  6. AMANTADINE. [Concomitant]
     Active Substance: AMANTADINE HYDROCHLORIDE
     Indication: PRODUCT USED FOR UNKNOWN INDICATION
  7. FUROSIMIDE [Concomitant]
     Active Substance: FUROSEMIDE
     Indication: PRODUCT USED FOR UNKNOWN INDICATION
  8. WARFARIN [Concomitant]
     Active Substance: WARFARIN
     Indication: PRODUCT USED FOR UNKNOWN INDICATION
     Dosage: 7.5 MG/10 MG

REACTIONS (1)
  - Postoperative thrombosis [Recovering/Resolving]

NARRATIVE: CASE EVENT DATE: 20200826
